FAERS Safety Report 9133178 (Version 1)
Quarter: 2013Q1

REPORT INFORMATION
  Report Type: Spontaneous
  Country: FR (occurrence: US)
  Receive Date: 20130126
  Receipt Date: 20130126
  Transmission Date: 20140127
  Serious: Yes (Life-Threatening)
  Sender: FDA-Public Use
  Company Number: US-US-EMD SERONO, INC.-7189106

PATIENT
  Age: 50 Year
  Sex: Male

DRUGS (6)
  1. NOVANTRONE [Suspect]
     Indication: ACUTE MYELOID LEUKAEMIA
     Route: 042
     Dates: start: 20081125, end: 20081126
  2. NOVANTRONE [Suspect]
     Route: 042
     Dates: start: 200901
  3. MYLOTARG [Suspect]
     Indication: ACUTE MYELOID LEUKAEMIA
  4. MYLOTARG [Suspect]
     Route: 042
     Dates: start: 20081128, end: 20081128
  5. ARACYTINE [Suspect]
     Indication: ACUTE MYELOID LEUKAEMIA
     Dates: start: 20081125, end: 20081130
  6. ARACYTINE [Suspect]
     Dates: start: 200901

REACTIONS (1)
  - Bronchopulmonary aspergillosis [Recovered/Resolved]
